FAERS Safety Report 7926852 (Version 3)
Quarter: 2013Q2

REPORT INFORMATION
  Report Type: Spontaneous
  Country: US (occurrence: US)
  Receive Date: 20110502
  Receipt Date: 20130611
  Transmission Date: 20140414
  Serious: Yes (Other)
  Sender: FDA-Public Use
  Company Number: US-ASTRAZENECA-2010SE58304

PATIENT
  Age: 61 Year
  Sex: Female

DRUGS (1)
  1. NEXIUM [Suspect]
     Route: 048

REACTIONS (5)
  - Blindness unilateral [Unknown]
  - Sleep disorder due to a general medical condition [Unknown]
  - Malaise [Unknown]
  - Malaise [Unknown]
  - Drug dose omission [Unknown]
